FAERS Safety Report 6426728-X (Version None)
Quarter: 2009Q4

REPORT INFORMATION
  Report Type: 
  Country: None (occurrence: None)
  Receive Date: 20091016
  Receipt Date: 20090528
  Transmission Date: 20100525
  Serious: Yes (Hospitalization)
  Sender: FDA-Public Use
  Company Number: A03200902350

PATIENT
  Age: 80 Year
  Sex: Male

DRUGS (3)
  1. ELOXATIN [Suspect]
     Indication: COLON CANCER METASTATIC
     Dosage: INTRAVENOUS NOS
     Route: 042
     Dates: start: 20090501, end: 20090501
  2. LEUCOVORIN CALCIUM [Suspect]
     Indication: COLON CANCER METASTATIC
     Dosage: INTRAVENOUS NOS
     Route: 042
     Dates: start: 20090501, end: 20090501
  3. FLUOROURACIL [Suspect]
     Indication: COLON CANCER METASTATIC
     Dosage: INTRAVENOUS NOS
     Route: 042
     Dates: start: 20090501, end: 20090501

REACTIONS (2)
  - COLITIS [None]
  - DIARRHOEA [None]
